FAERS Safety Report 15497243 (Version 2)
Quarter: 2018Q4

REPORT INFORMATION
  Report Type: Spontaneous
  Country: US (occurrence: US)
  Receive Date: 20181015
  Receipt Date: 20181026
  Transmission Date: 20190205
  Serious: No
  Sender: FDA-Public Use
  Company Number: US-PFIZER INC-2018414763

PATIENT
  Age: 54 Year
  Sex: Female

DRUGS (2)
  1. IBRANCE [Suspect]
     Active Substance: PALBOCICLIB
     Dosage: 100 MG, CYCLIC (100 MG Q DAY X21, 7 DAYS OFF)/ (IN THE EVENING)
     Dates: start: 20180930
  2. IBRANCE [Suspect]
     Active Substance: PALBOCICLIB
     Dosage: 100 MG, CYCLIC (100 MG Q DAY X21, 7 DAYS OFF)/ (IN THE EVENING)

REACTIONS (4)
  - Feeling jittery [Unknown]
  - White blood cell count decreased [Unknown]
  - Limb discomfort [Unknown]
  - Agitation [Unknown]
